FAERS Safety Report 9580652 (Version 4)
Quarter: 2014Q1

REPORT INFORMATION
  Report Type: Spontaneous
  Country: US (occurrence: US)
  Receive Date: 20131002
  Receipt Date: 20140217
  Transmission Date: 20141002
  Serious: No
  Sender: FDA-Public Use
  Company Number: US-009507513-1309USA006695

PATIENT
  Age: 30 Year
  Sex: Female

DRUGS (1)
  1. IMPLANON [Suspect]
     Dosage: UNK
     Route: 059
     Dates: start: 20100830, end: 20131224

REACTIONS (10)
  - General anaesthesia [Recovered/Resolved]
  - Weight increased [Unknown]
  - Limb discomfort [Unknown]
  - Device difficult to use [Recovered/Resolved]
  - Medical device complication [Recovered/Resolved]
  - Device kink [Recovered/Resolved]
  - Amenorrhoea [Recovered/Resolved]
  - Menstruation normal [Unknown]
  - Breast tenderness [Unknown]
  - Incorrect drug administration duration [Unknown]
